FAERS Safety Report 7934923 (Version 3)
Quarter: 2014Q2

REPORT INFORMATION
  Report Type: Spontaneous
  Country: US (occurrence: US)
  Receive Date: 20110509
  Receipt Date: 20140408
  Transmission Date: 20141212
  Serious: Yes (Hospitalization)
  Sender: FDA-Public Use
  Company Number: US-BAYER-2011-038603

PATIENT
  Age: 21 Year
  Sex: Female
  Weight: 97.05 kg

DRUGS (2)
  1. YASMIN [Suspect]
     Indication: CONTRACEPTION
     Dosage: UNK
     Dates: start: 2006, end: 2007
  2. YASMIN [Suspect]
     Indication: PREMENSTRUAL SYNDROME

REACTIONS (5)
  - Gallbladder disorder [None]
  - Cholecystitis acute [None]
  - Anxiety [Unknown]
  - Anhedonia [Unknown]
  - Pain [Unknown]
